FAERS Safety Report 17013873 (Version 1)
Quarter: 2019Q4

REPORT INFORMATION
  Report Type: Spontaneous
  Country: IT (occurrence: IT)
  Receive Date: 20191111
  Receipt Date: 20191111
  Transmission Date: 20200122
  Serious: Yes (Hospitalization)
  Sender: FDA-Public Use
  Company Number: IT-AUROBINDO-AUR-APL-2019-056539

PATIENT
  Age: 78 Year
  Sex: Male

DRUGS (8)
  1. HALCION [Suspect]
     Active Substance: TRIAZOLAM
     Dosage: 250 MICROGRAM, ONCE A DAY (IN THE EVENING)
     Route: 065
     Dates: start: 2005
  2. DAPAROX [Concomitant]
     Active Substance: PAROXETINE
     Indication: PRODUCT USED FOR UNKNOWN INDICATION
     Dosage: UNK
     Route: 065
     Dates: start: 2017
  3. GABAPENTIN. [Concomitant]
     Active Substance: GABAPENTIN
     Indication: PRODUCT USED FOR UNKNOWN INDICATION
     Dosage: UNK
     Route: 065
     Dates: start: 2018
  4. SOLOSA [Suspect]
     Active Substance: GLIMEPIRIDE
     Indication: TYPE 2 DIABETES MELLITUS
     Dosage: 0.5 DOSAGE FORM, ONCE A DAY (IN THE MORNING)
     Route: 065
     Dates: start: 2006
  5. HALCION [Suspect]
     Active Substance: TRIAZOLAM
     Indication: INSOMNIA
     Dosage: 1 DOSAGE FORM, ONCE A DAY
     Route: 065
  6. APROVEL [Concomitant]
     Active Substance: IRBESARTAN
     Indication: HYPERTENSION
     Dosage: 1 DF, DAILY (IN THE EVENING)
     Route: 065
     Dates: start: 2000
  7. COUMADIN [Concomitant]
     Active Substance: WARFARIN SODIUM
     Indication: PRODUCT USED FOR UNKNOWN INDICATION
     Dosage: VARIABLE DOSAGE (1/2 TABLET TO 3/4)
     Route: 065
     Dates: start: 2006
  8. METFORMIN FILM-COATED TABLET [Suspect]
     Active Substance: METFORMIN HYDROCHLORIDE
     Indication: TYPE 2 DIABETES MELLITUS
     Dosage: 1 DOSAGE FORM, ONCE A DAY (IN THE EVENING)
     Route: 065
     Dates: start: 2006

REACTIONS (3)
  - Peripheral swelling [Unknown]
  - Neurodermatitis [Not Recovered/Not Resolved]
  - Hyperkeratosis [Not Recovered/Not Resolved]

NARRATIVE: CASE EVENT DATE: 2018
